FAERS Safety Report 17290801 (Version 1)
Quarter: 2020Q1

REPORT INFORMATION
  Report Type: Spontaneous
  Country: US (occurrence: US)
  Receive Date: 20200121
  Receipt Date: 20200121
  Transmission Date: 20200409
  Serious: No
  Sender: FDA-Public Use
  Company Number: US-SUN PHARMACEUTICAL INDUSTRIES LTD-2019R1-226133

PATIENT
  Sex: Female

DRUGS (3)
  1. AMBRISENTAN [Suspect]
     Active Substance: AMBRISENTAN
     Indication: PRODUCT USED FOR UNKNOWN INDICATION
     Dosage: 5 MILLIGRAM, QD
     Route: 048
     Dates: start: 20191009
  2. REMODULIN [Concomitant]
     Active Substance: TREPROSTINIL
     Dosage: INCREASED
     Route: 065
  3. REMODULIN [Concomitant]
     Active Substance: TREPROSTINIL
     Indication: PRODUCT USED FOR UNKNOWN INDICATION
     Dosage: UNK
     Route: 065

REACTIONS (6)
  - Feeling hot [Unknown]
  - Abdominal discomfort [Unknown]
  - Lethargy [Unknown]
  - Musculoskeletal stiffness [Unknown]
  - Flushing [Unknown]
  - Irritability [Unknown]

NARRATIVE: CASE EVENT DATE: 2019
